FAERS Safety Report 12361540 (Version 1)
Quarter: 2016Q2

REPORT INFORMATION
  Report Type: Spontaneous
  Country: US (occurrence: US)
  Receive Date: 20160512
  Receipt Date: 20160512
  Transmission Date: 20160815
  Serious: No
  Sender: FDA-Public Use
  Company Number: US-UCBSA-2015030806

PATIENT
  Age: 31 Year

DRUGS (1)
  1. CIMZIA [Suspect]
     Active Substance: CERTOLIZUMAB PEGOL
     Indication: PRODUCT USED FOR UNKNOWN INDICATION
     Dosage: 400 MG, MONTHLY (QM)

REACTIONS (8)
  - Fatigue [Unknown]
  - Paraesthesia [Unknown]
  - Neck pain [Unknown]
  - Back pain [Unknown]
  - Dizziness [Unknown]
  - Dyspnoea [Unknown]
  - Visual impairment [Unknown]
  - Abdominal pain upper [Unknown]
